FAERS Safety Report 4485818-1 (Version None)
Quarter: 2004Q4

REPORT INFORMATION
  Report Type: 
  Country: None (occurrence: None)
  Receive Date: 20041022
  Receipt Date: 20041007
  Transmission Date: 20050328
  Serious: Yes (Death)
  Sender: FDA-Public Use
  Company Number: 2004-00614

PATIENT
  Age: 53 Year
  Sex: Male
  Weight: 80.7 kg

DRUGS (6)
  1. VELCADE [Suspect]
     Indication: MULTIPLE MYELOMA
     Dosage: 2.70 MG, INTRAVENOUS
     Route: 042
     Dates: start: 20041004
  2. DURAGESIC [Concomitant]
  3. VICODIN [Concomitant]
  4. CELEBREX [Concomitant]
  5. LASIX [Concomitant]
  6. POTASSIUM (POTASSIUM) [Concomitant]

REACTIONS (7)
  - ATRIAL FIBRILLATION [None]
  - CARDIAC AMYLOIDOSIS [None]
  - CIRCULATORY COLLAPSE [None]
  - HAEMATOCRIT DECREASED [None]
  - HAEMOGLOBIN DECREASED [None]
  - HYPERTROPHIC CARDIOMYOPATHY [None]
  - SUDDEN CARDIAC DEATH [None]
